FAERS Safety Report 10166960 (Version 1)
Quarter: 2014Q2

REPORT INFORMATION
  Report Type: Spontaneous
  Country: DE (occurrence: DE)
  Receive Date: 20140512
  Receipt Date: 20140512
  Transmission Date: 20141212
  Serious: Yes (Other)
  Sender: FDA-Public Use
  Company Number: PHHY2014DE055207

PATIENT
  Age: 70 Year
  Sex: Female

DRUGS (1)
  1. AMLODIPINE [Suspect]
     Indication: HYPERTENSIVE CRISIS

REACTIONS (17)
  - Dystonia [Not Recovered/Not Resolved]
  - Dysphonia [Not Recovered/Not Resolved]
  - Dysphagia [Not Recovered/Not Resolved]
  - Neck pain [Not Recovered/Not Resolved]
  - Blepharospasm [Not Recovered/Not Resolved]
  - Bruxism [Not Recovered/Not Resolved]
  - Dysarthria [Not Recovered/Not Resolved]
  - Mobility decreased [Not Recovered/Not Resolved]
  - Torticollis [Not Recovered/Not Resolved]
  - Muscle hypertrophy [Not Recovered/Not Resolved]
  - Psychomotor hyperactivity [Not Recovered/Not Resolved]
  - Decreased appetite [Not Recovered/Not Resolved]
  - Sleep disorder [Not Recovered/Not Resolved]
  - Depression [Not Recovered/Not Resolved]
  - Depressed mood [Not Recovered/Not Resolved]
  - Anxiety [Not Recovered/Not Resolved]
  - Dyspnoea [Not Recovered/Not Resolved]
